FAERS Safety Report 15222917 (Version 2)
Quarter: 2018Q3

REPORT INFORMATION
  Report Type: Spontaneous
  Country: FR (occurrence: FR)
  Receive Date: 20180731
  Receipt Date: 20180821
  Transmission Date: 20181010
  Serious: Yes (Hospitalization)
  Sender: FDA-Public Use
  Company Number: FR-TEVA-2018-FR-933578

PATIENT
  Age: 27 Year
  Sex: Female
  Weight: 59 kg

DRUGS (5)
  1. LAMOTRIGINE. [Suspect]
     Active Substance: LAMOTRIGINE
     Indication: SUICIDE ATTEMPT
     Route: 048
     Dates: start: 20180614, end: 20180614
  2. TERCIAN [Suspect]
     Active Substance: CYAMEMAZINE
     Indication: SUICIDE ATTEMPT
     Route: 048
     Dates: start: 20180614, end: 20180614
  3. AMISULPRIDE [Suspect]
     Active Substance: AMISULPRIDE
     Indication: SUICIDE ATTEMPT
     Route: 048
     Dates: start: 20180614, end: 20180614
  4. FLUOXETINE (CHLORHYDRATE DE) [Suspect]
     Active Substance: FLUOXETINE HYDROCHLORIDE
     Indication: SUICIDE ATTEMPT
     Route: 048
     Dates: start: 20180614, end: 20180614
  5. THERALENE [Suspect]
     Active Substance: TRIMEPRAZINE
     Indication: SUICIDE ATTEMPT
     Route: 048
     Dates: start: 20180614, end: 20180614

REACTIONS (3)
  - Intentional overdose [Recovered/Resolved]
  - Rhabdomyolysis [Recovered/Resolved]
  - Acute respiratory failure [Recovered/Resolved]

NARRATIVE: CASE EVENT DATE: 20180615
